FAERS Safety Report 13179266 (Version 1)
Quarter: 2017Q1

REPORT INFORMATION
  Report Type: Spontaneous
  Country: US (occurrence: US)
  Receive Date: 20170202
  Receipt Date: 20170202
  Transmission Date: 20170428
  Serious: Yes (Hospitalization, Other)
  Sender: FDA-Public Use
  Company Number: US-ASTRAZENECA-2017SE09988

PATIENT
  Age: 691 Month
  Sex: Female
  Weight: 77.1 kg

DRUGS (15)
  1. BRILINTA [Suspect]
     Active Substance: TICAGRELOR
     Indication: VASCULAR GRAFT
     Route: 048
     Dates: start: 20161121
  2. CARVEDILOL. [Concomitant]
     Active Substance: CARVEDILOL
     Route: 048
     Dates: start: 20161121, end: 20170117
  3. BRILINTA [Suspect]
     Active Substance: TICAGRELOR
     Indication: VASCULAR GRAFT
     Route: 048
     Dates: start: 201507, end: 201607
  4. BRILINTA [Suspect]
     Active Substance: TICAGRELOR
     Indication: CATHETERISATION CARDIAC
     Route: 048
     Dates: start: 201507, end: 201607
  5. ASPIRIN. [Concomitant]
     Active Substance: ASPIRIN
     Indication: ANTICOAGULANT THERAPY
     Route: 048
  6. RAMIPRIL. [Concomitant]
     Active Substance: RAMIPRIL
     Route: 048
     Dates: start: 20161121, end: 20170119
  7. CARVEDILOL. [Concomitant]
     Active Substance: CARVEDILOL
     Route: 048
     Dates: start: 20170118
  8. CRESTOR [Suspect]
     Active Substance: ROSUVASTATIN CALCIUM
     Indication: BLOOD CHOLESTEROL ABNORMAL
     Route: 048
  9. BRILINTA [Suspect]
     Active Substance: TICAGRELOR
     Indication: CATHETERISATION CARDIAC
     Route: 048
     Dates: start: 20161121
  10. METFORMIN [Concomitant]
     Active Substance: METFORMIN HYDROCHLORIDE
     Indication: DIABETES MELLITUS
     Route: 048
  11. BRILINTA [Suspect]
     Active Substance: TICAGRELOR
     Indication: STENT PLACEMENT
     Route: 048
     Dates: start: 201507, end: 201607
  12. BRILINTA [Suspect]
     Active Substance: TICAGRELOR
     Indication: STENT PLACEMENT
     Route: 048
     Dates: start: 20161121
  13. GLIPIZIDE. [Concomitant]
     Active Substance: GLIPIZIDE
     Indication: DIABETES MELLITUS
     Route: 048
  14. JANUVIA [Concomitant]
     Active Substance: SITAGLIPTIN PHOSPHATE
     Indication: DIABETES MELLITUS
     Route: 048
  15. LEVEMIR [Concomitant]
     Active Substance: INSULIN DETEMIR
     Indication: DIABETES MELLITUS
     Dosage: 10 UNITS DAILY
     Route: 058
     Dates: start: 201611

REACTIONS (5)
  - Coronary artery occlusion [Unknown]
  - Insomnia [Not Recovered/Not Resolved]
  - Gastrooesophageal reflux disease [Recovered/Resolved]
  - Off label use [Recovered/Resolved]
  - Myocardial infarction [Unknown]

NARRATIVE: CASE EVENT DATE: 201507
